FAERS Safety Report 5979985-8 (Version None)
Quarter: 2008Q4

REPORT INFORMATION
  Report Type: 
  Country: None (occurrence: None)
  Receive Date: 20081205
  Receipt Date: 20081125
  Transmission Date: 20090506
  Serious: Yes (Hospitalization, Other)
  Sender: FDA-Public Use
  Company Number: BR-BAYER-BR-2007-036704

PATIENT
  Age: 31 Year
  Sex: Female

DRUGS (3)
  1. YASMIN [Suspect]
     Indication: ORAL CONTRACEPTION
     Route: 048
     Dates: start: 20060101, end: 20070201
  2. CARBAMAZEPINE [Concomitant]
     Indication: CONVULSION
     Route: 048
  3. UNKNOWN DRUG [Concomitant]
     Indication: PROPHYLAXIS
     Route: 065

REACTIONS (3)
  - AMNIORRHEXIS [None]
  - PREGNANCY ON ORAL CONTRACEPTIVE [None]
  - PREMATURE LABOUR [None]
